FAERS Safety Report 7647089-4 (Version None)
Quarter: 2011Q3

REPORT INFORMATION
  Report Type: 
  Country: None (occurrence: None)
  Receive Date: 20110801
  Receipt Date: 20110722
  Transmission Date: 20111222
  Serious: Yes (Other)
  Sender: FDA-Public Use
  Company Number: US-JNJFOC-20110703745

PATIENT
  Sex: Female
  Weight: 47.63 kg

DRUGS (8)
  1. FORTICAL [Concomitant]
     Indication: BONE DISORDER
     Route: 045
  2. LEVOTHYROXINE SODIUM [Concomitant]
     Indication: HYPOTHYROIDISM
     Route: 048
  3. ELMIRON [Suspect]
     Indication: CYSTITIS INTERSTITIAL
     Route: 048
     Dates: start: 19990101
  4. EVISTA [Suspect]
     Indication: OSTEOPOROSIS
     Route: 048
     Dates: end: 20100101
  5. CALCIUM ACETATE [Concomitant]
     Indication: MINERAL SUPPLEMENTATION
     Route: 048
  6. VITAMIN D [Concomitant]
     Indication: VITAMIN SUPPLEMENTATION
     Route: 048
  7. FOSAMAX [Concomitant]
     Indication: BONE DISORDER
     Route: 048
  8. AMITRIPTYLINE HCL [Concomitant]
     Route: 048

REACTIONS (2)
  - COELIAC DISEASE [None]
  - MUSCLE SPASMS [None]
